FAERS Safety Report 8581525-4 (Version None)
Quarter: 2012Q3

REPORT INFORMATION
  Report Type: 
  Country: None (occurrence: None)
  Receive Date: 20120809
  Receipt Date: 20120807
  Transmission Date: 20120928
  Serious: Yes (Hospitalization)
  Sender: FDA-Public Use
  Company Number: IT-SANOFI-AVENTIS-2012SA053085

PATIENT
  Age: 65 Year
  Sex: Female

DRUGS (8)
  1. AMLODIPINE [Concomitant]
     Route: 048
  2. LORAZEPAM [Concomitant]
  3. LANSOPRAZOLE [Concomitant]
  4. COUMADIN [Concomitant]
     Indication: ATRIAL FIBRILLATION
     Dosage: STRENGTH: 5 MG
  5. RAMIPRIL [Suspect]
     Route: 048
     Dates: start: 20070101, end: 20120719
  6. LASIX [Suspect]
     Dosage: STRENGTH: 25 MG
     Route: 048
     Dates: start: 20070101, end: 20120719
  7. BISOPROLOL FUMARATE [Concomitant]
     Route: 048
  8. METFORMIN HYDROCHLORIDE [Concomitant]

REACTIONS (3)
  - FALL [None]
  - PSYCHOMOTOR RETARDATION [None]
  - HYPONATRAEMIA [None]
